FAERS Safety Report 5988988-9 (Version None)
Quarter: 2008Q4

REPORT INFORMATION
  Report Type: 
  Country: None (occurrence: None)
  Receive Date: 20081210
  Receipt Date: 20081203
  Transmission Date: 20090506
  Serious: Yes (Other)
  Sender: FDA-Public Use
  Company Number: A0758964A

PATIENT
  Sex: Female

DRUGS (8)
  1. AVANDIA [Suspect]
     Dosage: 8MG PER DAY
     Route: 048
     Dates: start: 20040101, end: 20070101
  2. DIABETA [Concomitant]
  3. LEVOTHYROXINE SODIUM [Concomitant]
  4. METFORMIN HCL [Concomitant]
  5. DILTIAZEM [Concomitant]
  6. BLOOD PRESSURE MEDICATION [Concomitant]
  7. JANUVIA [Concomitant]
  8. LIPITOR [Concomitant]

REACTIONS (7)
  - BLINDNESS [None]
  - JOINT SWELLING [None]
  - NIGHT BLINDNESS [None]
  - OEDEMA PERIPHERAL [None]
  - PAIN IN EXTREMITY [None]
  - VISION BLURRED [None]
  - VISUAL IMPAIRMENT [None]
